FAERS Safety Report 25532134 (Version 1)
Quarter: 2025Q3

REPORT INFORMATION
  Report Type: Spontaneous
  Country: EU (occurrence: EU)
  Receive Date: 20250709
  Receipt Date: 20250709
  Transmission Date: 20251021
  Serious: Yes (Death, Hospitalization, Other)
  Sender: CELLTRION
  Company Number: EU-AMGEN-DEUSP2025037340

PATIENT

DRUGS (2)
  1. ADALIMUMAB [Suspect]
     Active Substance: ADALIMUMAB
     Indication: Takayasu^s arteritis
     Dosage: UNK UNK, Q2WK
     Route: 065
  2. PREDNISOLONE [Concomitant]
     Active Substance: PREDNISOLONE
     Indication: Takayasu^s arteritis
     Route: 048

REACTIONS (10)
  - Death [Fatal]
  - Aortic aneurysm [Unknown]
  - Osteosarcoma [Unknown]
  - Renal failure [Unknown]
  - Metastases to skin [Unknown]
  - Metastases to muscle [Unknown]
  - Metastases to liver [Unknown]
  - Metastases to abdominal wall [Unknown]
  - Sarcoma metastatic [Unknown]
  - Off label use [Unknown]

NARRATIVE: CASE EVENT DATE: 20221201
